FAERS Safety Report 8207182-4 (Version None)
Quarter: 2012Q1

REPORT INFORMATION
  Report Type: 
  Country: None (occurrence: None)
  Receive Date: 20120314
  Receipt Date: 20120309
  Transmission Date: 20120608
  Serious: No
  Sender: FDA-Public Use
  Company Number: US-PFIZER INC-2012063612

PATIENT
  Sex: Female
  Weight: 70.522 kg

DRUGS (2)
  1. LYRICA [Suspect]
     Indication: NEURALGIA
     Dosage: 50 MG, 3X/DAY
     Route: 048
     Dates: start: 20111101
  2. LEVOTHROID [Concomitant]
     Indication: HYPOTHYROIDISM
     Dosage: 0.1 MG, 1X/DAY

REACTIONS (7)
  - DRY EYE [None]
  - NASAL DRYNESS [None]
  - FLATULENCE [None]
  - WEIGHT INCREASED [None]
  - DRY MOUTH [None]
  - SALIVARY GLAND DISORDER [None]
  - RHINALGIA [None]
